FAERS Safety Report 21870931 (Version 1)
Quarter: 2023Q1

REPORT INFORMATION
  Report Type: Spontaneous
  Country: US (occurrence: US)
  Receive Date: 20230117
  Receipt Date: 20230117
  Transmission Date: 20230418
  Serious: Yes (Death, Life-Threatening)
  Sender: FDA-Public Use
  Company Number: US-drreddys-LIT/USA/23/0159858

PATIENT
  Age: 4 Month
  Sex: Male

DRUGS (12)
  1. SIROLIMUS [Suspect]
     Active Substance: SIROLIMUS
     Indication: Venolymphatic malformation
     Dosage: 0.8 MG/M2/DAY (0.14MG) ORAL SOLUTION AT DAY 8
     Route: 048
  2. SIROLIMUS [Suspect]
     Active Substance: SIROLIMUS
     Dosage: 0.18MG (AT 2 MONTH)
     Route: 048
  3. SIROLIMUS [Suspect]
     Active Substance: SIROLIMUS
     Dosage: 0.22MG (DAY 75)
     Route: 048
  4. SIROLIMUS [Suspect]
     Active Substance: SIROLIMUS
     Dosage: 0.3 MG/DAY (DAY 83)
     Route: 048
  5. SIROLIMUS [Suspect]
     Active Substance: SIROLIMUS
     Dosage: 0.4 MG/DAY (DAY 118)
     Route: 048
  6. DOXYCYCLINE [Suspect]
     Active Substance: DOXYCYCLINE
     Indication: Venolymphatic malformation
     Dosage: 150MG WAS INITIATED ON DAY 6 OF LIFE
  7. DOXYCYCLINE [Suspect]
     Active Substance: DOXYCYCLINE
     Dosage: BIWEEKLY DOSE AT 4 X 150MG (DAY 15?29)
  8. DOXYCYCLINE [Suspect]
     Active Substance: DOXYCYCLINE
     Dosage: 300MG (ON DAY 33)
  9. DOXYCYCLINE [Suspect]
     Active Substance: DOXYCYCLINE
     Dosage: 3 X 300MG (AT 1.5 MONTH)
  10. DOXYCYCLINE [Suspect]
     Active Substance: DOXYCYCLINE
     Dosage: 10 X 300MG (AT AROUND 2 MONTHS)
  11. DOXYCYCLINE [Suspect]
     Active Substance: DOXYCYCLINE
     Dosage: 7 X 300MG (AT AROUND 3 MONTHS)
  12. BLEOMYCIN [Suspect]
     Active Substance: BLEOMYCIN SULFATE
     Indication: Venolymphatic malformation

REACTIONS (2)
  - Pulmonary haemorrhage [Fatal]
  - Drug ineffective for unapproved indication [Unknown]
